FAERS Safety Report 9459436 (Version 1)
Quarter: 2013Q3

REPORT INFORMATION
  Report Type: Spontaneous
  Country: GB (occurrence: GB)
  Receive Date: 20130815
  Receipt Date: 20130815
  Transmission Date: 20140515
  Serious: Yes (Hospitalization)
  Sender: FDA-Public Use
  Company Number: GB-ASTRAZENECA-2013SE61853

PATIENT
  Age: 73 Year
  Sex: Female
  Weight: 61 kg

DRUGS (11)
  1. TICAGRELOR [Suspect]
     Route: 048
     Dates: start: 20130419
  2. ASPIRIN [Concomitant]
     Dates: start: 20130419
  3. ATORVASTATIN [Concomitant]
     Dates: start: 20130419
  4. BISOPROLOL [Concomitant]
     Dates: start: 20130419
  5. ESTRIOL [Concomitant]
     Dates: start: 20130705
  6. GLYCERYL TRINITRATE [Concomitant]
     Dates: start: 20130419, end: 20130517
  7. LAXIDO [Concomitant]
     Dates: start: 20130718
  8. NITROFURANTOIN [Concomitant]
     Dates: start: 20130703, end: 20130710
  9. NORFLOXACIN [Concomitant]
     Dates: start: 20130703
  10. OMEPRAZOLE [Concomitant]
     Dates: start: 20130408
  11. RAMIPRIL [Concomitant]
     Dates: start: 20130419

REACTIONS (2)
  - Urethral perforation [Recovering/Resolving]
  - Haemorrhage [Recovering/Resolving]
